FAERS Safety Report 24685741 (Version 4)
Quarter: 2025Q2

REPORT INFORMATION
  Report Type: Spontaneous
  Country: US (occurrence: US)
  Receive Date: 20241202
  Receipt Date: 20250407
  Transmission Date: 20250717
  Serious: No
  Sender: PFIZER
  Company Number: US-PFIZER INC-202400310302

PATIENT
  Age: 67 Year
  Sex: Female

DRUGS (2)
  1. TOFACITINIB CITRATE [Suspect]
     Active Substance: TOFACITINIB CITRATE
  2. ETANERCEPT [Suspect]
     Active Substance: ETANERCEPT

REACTIONS (2)
  - Drug hypersensitivity [Unknown]
  - Nasopharyngitis [Unknown]
